FAERS Safety Report 20078246 (Version 2)
Quarter: 2021Q4

REPORT INFORMATION
  Report Type: Spontaneous
  Country: LT (occurrence: None)
  Receive Date: 20211117
  Receipt Date: 20211201
  Transmission Date: 20220303
  Serious: Yes (Death)
  Sender: FDA-Public Use
  Company Number: LT-ROCHE-2945324

PATIENT
  Age: 67 Year
  Sex: Female

DRUGS (8)
  1. RITUXIMAB [Suspect]
     Active Substance: RITUXIMAB
     Indication: B-cell lymphoma
     Dosage: ON 14/OCT/2021, HAD MOST RECENT DOSE OF RITUXIMAB; FIRST LINE OF TREATMENT (R-CHOP).
     Route: 065
     Dates: start: 20210603, end: 20210920
  2. RITUXIMAB [Suspect]
     Active Substance: RITUXIMAB
     Dosage: SECOND LINE OF TREATMENT
     Route: 065
     Dates: start: 20211014, end: 20211022
  3. POLATUZUMAB VEDOTIN [Suspect]
     Active Substance: POLATUZUMAB VEDOTIN
     Indication: B-cell lymphoma
     Dosage: SECOND LINE OF TREATMENT
     Route: 065
     Dates: start: 20211014, end: 20211022
  4. BENDAMUSTINE [Suspect]
     Active Substance: BENDAMUSTINE
     Indication: B-cell lymphoma
     Dosage: SECOND LINE OF TREATMENT
     Route: 065
     Dates: start: 20211014, end: 20211022
  5. CYCLOPHOSPHAMIDE [Suspect]
     Active Substance: CYCLOPHOSPHAMIDE
     Indication: B-cell lymphoma
     Route: 065
     Dates: start: 20210603
  6. DOXORUBICIN HYDROCHLORIDE [Suspect]
     Active Substance: DOXORUBICIN HYDROCHLORIDE
     Indication: B-cell lymphoma
     Route: 065
     Dates: start: 20210603
  7. VINCRISTINE SULFATE [Suspect]
     Active Substance: VINCRISTINE SULFATE
     Indication: B-cell lymphoma
     Route: 065
  8. PREDNISONE [Suspect]
     Active Substance: PREDNISONE
     Indication: B-cell lymphoma
     Route: 065

REACTIONS (2)
  - Disease progression [Fatal]
  - Drug ineffective [Unknown]
